FAERS Safety Report 6746726-6 (Version None)
Quarter: 2010Q2

REPORT INFORMATION
  Report Type: 
  Country: None (occurrence: None)
  Receive Date: 20100528
  Receipt Date: 20090527
  Transmission Date: 20101027
  Serious: No
  Sender: FDA-Public Use
  Company Number: A0786434A

PATIENT
  Sex: Male

DRUGS (2)
  1. VENTOLIN [Suspect]
     Indication: ASTHMA
     Dosage: 1PUFF SINGLE DOSE
     Route: 055
  2. CORTICOSTEROID [Concomitant]

REACTIONS (1)
  - ASTHENIA [None]
